FAERS Safety Report 24604234 (Version 2)
Quarter: 2024Q4

REPORT INFORMATION
  Report Type: Spontaneous
  Country: BR (occurrence: BR)
  Receive Date: 20241111
  Receipt Date: 20241126
  Transmission Date: 20250114
  Serious: Yes (Death)
  Sender: ROCHE
  Company Number: BR-ROCHE-10000126190

PATIENT
  Sex: Male

DRUGS (1)
  1. ALECENSA [Suspect]
     Active Substance: ALECTINIB HYDROCHLORIDE
     Indication: Product used for unknown indication
     Route: 065

REACTIONS (2)
  - Death [Fatal]
  - Product storage error [Unknown]

NARRATIVE: CASE EVENT DATE: 20241101
